FAERS Safety Report 6602732-3 (Version None)
Quarter: 2010Q1

REPORT INFORMATION
  Report Type: 
  Country: None (occurrence: None)
  Receive Date: 20100225
  Receipt Date: 20100216
  Transmission Date: 20100710
  Serious: Yes (Other)
  Sender: FDA-Public Use
  Company Number: US-AMGEN-US338361

PATIENT
  Sex: Female

DRUGS (8)
  1. NPLATE [Suspect]
     Indication: IDIOPATHIC THROMBOCYTOPENIC PURPURA
     Route: 058
     Dates: start: 20090212, end: 20091001
  2. PREDNISONE TAB [Concomitant]
     Route: 065
  3. TOPAMAX [Concomitant]
  4. LISINOPRIL [Concomitant]
  5. VITAMINS NOS [Concomitant]
  6. UNSPECIFIED HERBAL PRODUCT [Concomitant]
  7. VINCRISTINE [Concomitant]
     Route: 065
     Dates: start: 20080922
  8. CYCLOPHOSPHAMIDE [Concomitant]
     Route: 065
     Dates: start: 20090920

REACTIONS (4)
  - ASTHENIA [None]
  - BLOOD PRESSURE DECREASED [None]
  - DRUG INEFFECTIVE [None]
  - PLATELET COUNT INCREASED [None]
